FAERS Safety Report 9861130 (Version 1)
Quarter: 2014Q1

REPORT INFORMATION
  Report Type: Spontaneous
  Country: US (occurrence: None)
  Receive Date: 20140131
  Receipt Date: 20140131
  Transmission Date: 20141002
  Serious: No
  Sender: FDA-Public Use
  Company Number: None

PATIENT
  Age: 51 Year
  Sex: Male
  Weight: 69.85 kg

DRUGS (1)
  1. LIVALO [Suspect]
     Indication: BLOOD CHOLESTEROL INCREASED
     Dosage: 1 PILL ONCE PER WEEK TAKEN BY MOUTH
     Route: 048
     Dates: start: 20131114, end: 20140130

REACTIONS (6)
  - Abdominal distension [None]
  - Dyspepsia [None]
  - Muscular weakness [None]
  - Nausea [None]
  - Fatigue [None]
  - Insomnia [None]
